FAERS Safety Report 13620159 (Version 1)
Quarter: 2017Q2

REPORT INFORMATION
  Report Type: Spontaneous
  Country: CA (occurrence: CA)
  Receive Date: 20170607
  Receipt Date: 20170607
  Transmission Date: 20170830
  Serious: Yes (Other)
  Sender: FDA-Public Use
  Company Number: CA-ORION CORPORATION ORION PHARMA-TREX2017-1659

PATIENT
  Age: 29 Year
  Sex: Male

DRUGS (6)
  1. FOLIC ACID. [Concomitant]
     Active Substance: FOLIC ACID
     Dosage: EVERY DAY EXCEPT WEDNESDAY
     Route: 048
     Dates: start: 201607
  2. PREDNISONE. [Concomitant]
     Active Substance: PREDNISONE
     Dosage: DURING 1 WEEK
     Route: 048
  3. METHOTREXATE (TRADE NAME UNKNOWN) [Suspect]
     Active Substance: METHOTREXATE
     Dosage: ON WEDNESDAY
     Route: 048
     Dates: start: 201607
  4. CORTIMENT [Concomitant]
     Route: 048
     Dates: start: 20170503, end: 20170517
  5. PREDNISONE. [Concomitant]
     Active Substance: PREDNISONE
     Route: 048
     Dates: start: 20170517
  6. CORTIMENT [Concomitant]
     Dosage: NIGHTLY
     Route: 065
     Dates: start: 20170428, end: 20170525

REACTIONS (2)
  - Frequent bowel movements [Unknown]
  - Haematochezia [Unknown]

NARRATIVE: CASE EVENT DATE: 201705
